FAERS Safety Report 16388864 (Version 1)
Quarter: 2019Q3

REPORT INFORMATION
  Report Type: Spontaneous
  Country: US (occurrence: US)
  Receive Date: 20190603
  Receipt Date: 20190603
  Transmission Date: 20191004
  Serious: No
  Sender: FDA-Public Use
  Company Number: None

PATIENT
  Age: 29 Year
  Sex: Female
  Weight: 68.04 kg

DRUGS (2)
  1. BLISOVI 24 FE [Concomitant]
     Active Substance: ETHINYL ESTRADIOL\NORETHINDRONE ACETATE
  2. PARAGARD T 380A [Suspect]
     Active Substance: COPPER

REACTIONS (3)
  - Pregnancy with contraceptive device [None]
  - Maternal exposure during pregnancy [None]
  - Device expulsion [None]

NARRATIVE: CASE EVENT DATE: 20180305
